FAERS Safety Report 5005966-7 (Version None)
Quarter: 2006Q1

REPORT INFORMATION
  Report Type: 
  Country: None (occurrence: None)
  Receive Date: 20060320
  Receipt Date: 20050202
  Transmission Date: 20060701
  Serious: Yes (Other)
  Sender: FDA-Public Use
  Company Number: 2005-02-0188

PATIENT

DRUGS (2)
  1. PEG-INTRON [Suspect]
     Dosage: SUBCUTANEOUS
     Route: 058
  2. REBETOL [Suspect]
     Dosage: ORAL
     Route: 048

REACTIONS (3)
  - LICHENOID KERATOSIS [None]
  - RASH [None]
  - SYSTEMIC LUPUS ERYTHEMATOSUS [None]
